FAERS Safety Report 7107761-1 (Version None)
Quarter: 2010Q4

REPORT INFORMATION
  Report Type: 
  Country: None (occurrence: None)
  Receive Date: 20101117
  Receipt Date: 20101102
  Transmission Date: 20110411
  Serious: Yes (Hospitalization)
  Sender: FDA-Public Use
  Company Number: PHHY2010ES74098

PATIENT
  Age: 77 Year
  Sex: Male

DRUGS (11)
  1. VALSARTAN [Suspect]
     Indication: ACUTE CORONARY SYNDROME
     Dosage: 80 MG DAILY
     Dates: start: 20100101, end: 20100731
  2. MASDIL [Suspect]
     Indication: ACUTE CORONARY SYNDROME
     Dosage: 120 MG DAILY
     Dates: start: 20100101, end: 20100731
  3. OMEPRAZOLE [Concomitant]
  4. ASPIRIN [Concomitant]
  5. HIDROALTESONA [Concomitant]
     Indication: RENAL FAILURE
  6. LEVOTHROID [Concomitant]
     Indication: HYPOTHYROIDISM
     Dosage: 50 MG DAILY
  7. TAMSULOSIN [Concomitant]
     Dosage: 0.4 MG PER DAY
  8. SECALIP [Concomitant]
     Indication: DYSLIPIDAEMIA
     Dosage: 145 MG
  9. SERETIDE [Concomitant]
     Indication: ASTHMA
     Dosage: 50/500
  10. SINGULAIR [Concomitant]
     Indication: ASTHMA
     Dosage: 4 MG
  11. SPIRIVA [Concomitant]
     Indication: ASTHMA

REACTIONS (1)
  - ATRIOVENTRICULAR BLOCK [None]
